FAERS Safety Report 9908513 (Version 1)
Quarter: 2014Q1

REPORT INFORMATION
  Report Type: Spontaneous
  Country: US (occurrence: None)
  Receive Date: 20140214
  Receipt Date: 20140214
  Transmission Date: 20141002
  Serious: Yes (Hospitalization)
  Sender: FDA-Public Use
  Company Number: None

PATIENT
  Age: 32 None
  Sex: Male
  Weight: 52.3 kg

DRUGS (3)
  1. ASPIRIN [Suspect]
     Indication: BACK PAIN
     Dosage: AT LEAST 4TABLETS?RECENT
     Route: 048
  2. IBUPROFEN [Suspect]
     Indication: BACK PAIN
     Dosage: RECENT
     Route: 048
  3. TYLENOL [Concomitant]

REACTIONS (3)
  - Haematemesis [None]
  - Alcohol abuse [None]
  - Gastritis [None]
